FAERS Safety Report 16484383 (Version 1)
Quarter: 2019Q2

REPORT INFORMATION
  Report Type: Spontaneous
  Country: FR (occurrence: FR)
  Receive Date: 20190627
  Receipt Date: 20190627
  Transmission Date: 20190711
  Serious: Yes (Life-Threatening)
  Sender: FDA-Public Use
  Company Number: FR-MYLANLABS-2019M1059993

PATIENT
  Age: 67 Year
  Sex: Male
  Weight: 97 kg

DRUGS (14)
  1. DEXAMETHASONE MYLAN [Suspect]
     Active Substance: DEXAMETHASONE
     Dosage: 2 GRAM, QD
     Route: 042
     Dates: start: 20181217, end: 20181217
  2. CEFAZOLINE PANPHARMA [Suspect]
     Active Substance: CEFAZOLIN SODIUM
     Indication: ANTIBIOTIC PROPHYLAXIS
     Dosage: 25 MILLIGRAM, QD
     Route: 042
     Dates: start: 20181217, end: 20181217
  3. SUFENTANIL RENAUDIN [Suspect]
     Active Substance: SUFENTANIL CITRATE
     Indication: GENERAL ANAESTHESIA
     Dosage: 25 MILLIGRAM, QD
     Route: 042
     Dates: start: 20181217, end: 20181217
  4. SUFENTANIL RENAUDIN [Suspect]
     Active Substance: SUFENTANIL CITRATE
     Dosage: 30 MICROGRAM, QD
     Route: 042
     Dates: start: 20181217, end: 20181217
  5. DEXAMETHASONE MYLAN [Suspect]
     Active Substance: DEXAMETHASONE
     Indication: GENERAL ANAESTHESIA
     Dosage: 8 MILLIGRAM, QD
     Route: 042
     Dates: start: 20181217, end: 20181217
  6. SUFENTANIL RENAUDIN [Suspect]
     Active Substance: SUFENTANIL CITRATE
     Dosage: 35 MICROGRAM, QD
     Route: 042
     Dates: start: 20181217, end: 20181217
  7. DEXAMETHASONE MYLAN [Suspect]
     Active Substance: DEXAMETHASONE
     Dosage: 25 MILLIGRAM, QD
     Route: 042
     Dates: start: 20181217, end: 20181217
  8. CEFAZOLINE PANPHARMA [Suspect]
     Active Substance: CEFAZOLIN SODIUM
     Dosage: 35 MICROGRAM, QD
     Route: 042
     Dates: start: 20181217, end: 20181217
  9. ATRACURIUM HOSPIRA [Suspect]
     Active Substance: ATRACURIUM BESYLATE
     Indication: GENERAL ANAESTHESIA
     Dosage: 40 MILLIGRAM, QD
     Route: 042
     Dates: start: 20181217, end: 20181217
  10. DEXAMETHASONE MYLAN [Suspect]
     Active Substance: DEXAMETHASONE
     Dosage: 35 MICROGRAM, QD
     Route: 042
     Dates: start: 20181217, end: 20181217
  11. KETAMINE PANPHARMA [Suspect]
     Active Substance: KETAMINE
     Dosage: 35 MICROGRAM, QD
     Route: 042
     Dates: start: 20181217, end: 20181217
  12. CEFAZOLINE PANPHARMA [Suspect]
     Active Substance: CEFAZOLIN SODIUM
     Dosage: 2 GRAM, QD
     Route: 042
     Dates: start: 20181217, end: 20181217
  13. PROPOFOL LIPURO [Suspect]
     Active Substance: PROPOFOL
     Indication: GENERAL ANAESTHESIA
     Dosage: 300 MILLIGRAM, QD
     Route: 042
     Dates: start: 20181217, end: 20181217
  14. KETAMINE PANPHARMA [Suspect]
     Active Substance: KETAMINE
     Indication: GENERAL ANAESTHESIA
     Dosage: 25 MILLIGRAM, QD
     Route: 042
     Dates: start: 20181217, end: 20181217

REACTIONS (4)
  - Bradycardia [Recovered/Resolved]
  - Circulatory collapse [Recovered/Resolved]
  - Tachycardia [Recovered/Resolved]
  - Erythema [Recovered/Resolved]

NARRATIVE: CASE EVENT DATE: 20181217
